FAERS Safety Report 13006982 (Version 2)
Quarter: 2016Q4

REPORT INFORMATION
  Report Type: Spontaneous
  Country: US (occurrence: US)
  Receive Date: 20161207
  Receipt Date: 20161209
  Transmission Date: 20170207
  Serious: Yes (Hospitalization, Other)
  Sender: FDA-Public Use
  Company Number: US-JNJFOC-20161200220

PATIENT
  Sex: Female
  Weight: 112.95 kg

DRUGS (2)
  1. REMICADE [Suspect]
     Active Substance: INFLIXIMAB
     Indication: RHEUMATOID ARTHRITIS
     Route: 042
     Dates: start: 2008, end: 2011
  2. METHOTREXATE. [Concomitant]
     Active Substance: METHOTREXATE
     Route: 065
     Dates: start: 2008

REACTIONS (7)
  - Knee deformity [Unknown]
  - Intervertebral disc degeneration [Unknown]
  - Pain [Unknown]
  - Intervertebral disc protrusion [Unknown]
  - Fatigue [Unknown]
  - Therapeutic response decreased [Unknown]
  - Polyarthritis [Unknown]

NARRATIVE: CASE EVENT DATE: 2010
